FAERS Safety Report 9173559 (Version 1)
Quarter: 2013Q1

REPORT INFORMATION
  Report Type: Spontaneous
  Country: US (occurrence: None)
  Receive Date: 20130318
  Receipt Date: 20130318
  Transmission Date: 20140127
  Serious: Yes (Hospitalization)
  Sender: FDA-Public Use
  Company Number: None

PATIENT
  Age: 50 Year
  Sex: Female
  Weight: 63.5 kg

DRUGS (2)
  1. RIFAPETINE [Suspect]
     Indication: LATENT TUBERCULOSIS
     Route: 048
     Dates: start: 20121112, end: 20121126
  2. ISONIAZIDE [Suspect]
     Dosage: 900 MG ONCE WEEKLY, PO
     Dates: start: 20121119, end: 20121212

REACTIONS (6)
  - Headache [None]
  - Unevaluable event [None]
  - Flushing [None]
  - Chest discomfort [None]
  - Wheezing [None]
  - Urticaria [None]
